FAERS Safety Report 17994981 (Version 3)
Quarter: 2020Q3

REPORT INFORMATION
  Report Type: Spontaneous
  Country: FR (occurrence: FR)
  Receive Date: 20200708
  Receipt Date: 20200821
  Transmission Date: 20201103
  Serious: Yes (Death, Other)
  Sender: FDA-Public Use
  Company Number: FR-MYLANLABS-2008S1004225

PATIENT
  Age: 15 Year
  Sex: Female

DRUGS (2)
  1. MINOCYCLINE [Suspect]
     Active Substance: MINOCYCLINE HYDROCHLORIDE
     Indication: ACNE
     Dosage: 2.4 G (TOTAL DOSE)
  2. PREDNISONE. [Suspect]
     Active Substance: PREDNISONE
     Indication: DRUG REACTION WITH EOSINOPHILIA AND SYSTEMIC SYMPTOMS
     Dosage: UNK

REACTIONS (12)
  - Steroid diabetes [Fatal]
  - Face oedema [Recovered/Resolved]
  - Pyrexia [Unknown]
  - Drug reaction with eosinophilia and systemic symptoms [Recovered/Resolved]
  - Renal impairment [Recovered/Resolved]
  - Hepatic function abnormal [Recovered/Resolved]
  - Rash [Recovered/Resolved]
  - Pulmonary function test abnormal [Recovered/Resolved]
  - Eosinophilia [Unknown]
  - Diabetic coma [Fatal]
  - Lymphadenopathy [Recovered/Resolved]
  - Pigmentation disorder [Recovered/Resolved]
